FAERS Safety Report 6596452-1 (Version None)
Quarter: 2010Q1

REPORT INFORMATION
  Report Type: 
  Country: None (occurrence: None)
  Receive Date: 20100223
  Receipt Date: 20100215
  Transmission Date: 20100710
  Serious: Yes (Hospitalization, Other)
  Sender: FDA-Public Use
  Company Number: US-ELI_LILLY_AND_COMPANY-US201002004511

PATIENT
  Sex: Female

DRUGS (9)
  1. HUMALOG MIX 75/25 [Suspect]
     Dosage: 55 U, EACH MORNING
  2. HUMALOG MIX 75/25 [Suspect]
     Dosage: 55 U, EACH EVENING
  3. HUMALOG MIX 75/25 [Suspect]
     Dosage: 55 U, EACH MORNING
  4. HUMALOG MIX 75/25 [Suspect]
     Dosage: 55 U, EACH EVENING
  5. HUMALOG [Suspect]
     Dosage: UNK, 3/D
  6. HUMALOG [Suspect]
     Dosage: UNK, AS NEEDED
  7. HUMALOG [Suspect]
     Dosage: UNK, EACH EVENING
  8. HUMULIN N [Suspect]
     Dosage: UNK, EACH EVENING
  9. HUMULIN N [Suspect]

REACTIONS (5)
  - ATRIAL FIBRILLATION [None]
  - BLINDNESS [None]
  - BLOOD GLUCOSE INCREASED [None]
  - CORONARY ARTERY OCCLUSION [None]
  - DRUG INEFFECTIVE [None]
